FAERS Safety Report 8880367 (Version 1)
Quarter: 2012Q4

REPORT INFORMATION
  Report Type: 
  Country: NL (occurrence: NL)
  Receive Date: 20121101
  Receipt Date: 20121101
  Transmission Date: 20130627
  Serious: Yes (Hospitalization)
  Sender: FDA-Public Use
  Company Number: NL-PFIZER INC-2012266733

PATIENT
  Age: 66 Year
  Sex: Female
  Weight: 96 kg

DRUGS (8)
  1. GENOTROPIN [Suspect]
     Indication: GROWTH HORMONE DEFICIENCY
     Dosage: 0.4 mg, 1x/day, 7injections /week
     Route: 058
     Dates: start: 20070319
  2. ESTRADIOL [Concomitant]
     Indication: LH BLOOD DECREASED
     Dosage: UNK
     Dates: start: 20010701
  3. ESTRADIOL [Concomitant]
     Indication: FSH DECREASED
  4. ESTRADIOL [Concomitant]
     Indication: HYPOGONADISM FEMALE
  5. HYDROCORTISONE [Concomitant]
     Indication: ACTH DECREASED
     Dosage: UNK
     Dates: start: 20040607
  6. APROVEL [Concomitant]
     Indication: ESSENTIAL HYPERTENSION
     Dosage: UNK
     Dates: start: 20050822
  7. LEVOTHYROXINE [Concomitant]
     Indication: TSH DECREASED
     Dosage: UNK
     Dates: start: 20040607
  8. LEVOTHYROXINE [Concomitant]
     Indication: PRIMARY HYPOTHYROIDISM

REACTIONS (1)
  - Pyrexia [Unknown]
